FAERS Safety Report 19461340 (Version 1)
Quarter: 2021Q2

REPORT INFORMATION
  Report Type: Spontaneous
  Country: GB (occurrence: GB)
  Receive Date: 20210625
  Receipt Date: 20210625
  Transmission Date: 20210717
  Serious: Yes (Disabling, Other)
  Sender: FDA-Public Use
  Company Number: GB-ACCORD-229361

PATIENT
  Age: 74 Year
  Sex: Female
  Weight: 85.72 kg

DRUGS (8)
  1. FEXOFENADINE [Concomitant]
     Active Substance: FEXOFENADINE HYDROCHLORIDE
  2. MOMETASONE [Concomitant]
     Active Substance: MOMETASONE
     Route: 045
  3. MAROL [Concomitant]
     Active Substance: TRAMADOL HYDROCHLORIDE
  4. MIRTAZAPINE. [Concomitant]
     Active Substance: MIRTAZAPINE
  5. CODEINE [Concomitant]
     Active Substance: CODEINE
  6. MELOXICAM. [Concomitant]
     Active Substance: MELOXICAM
  7. ACCORD HEALTHCARE ROSUVASTATIN [Suspect]
     Active Substance: ROSUVASTATIN CALCIUM
     Indication: HYPERCHOLESTEROLAEMIA
     Route: 048
     Dates: start: 202105, end: 202105
  8. ACCORD HEALTHCARE ROSUVASTATIN [Suspect]
     Active Substance: ROSUVASTATIN CALCIUM
     Indication: HYPERCHOLESTEROLAEMIA
     Route: 048
     Dates: start: 20210424, end: 20210428

REACTIONS (8)
  - Joint stiffness [Not Recovered/Not Resolved]
  - Joint noise [Not Recovered/Not Resolved]
  - Nausea [Recovered/Resolved]
  - Abdominal pain upper [Recovered/Resolved]
  - Diarrhoea [Recovered/Resolved]
  - Musculoskeletal stiffness [Not Recovered/Not Resolved]
  - Myalgia [Not Recovered/Not Resolved]
  - Arthralgia [Not Recovered/Not Resolved]

NARRATIVE: CASE EVENT DATE: 20210424
